FAERS Safety Report 9825666 (Version 1)
Quarter: 2013Q4

REPORT INFORMATION
  Report Type: Spontaneous
  Country: US (occurrence: None)
  Receive Date: 20131028
  Receipt Date: 20131028
  Transmission Date: 20140711
  Serious: Yes (Hospitalization)
  Sender: FDA-Public Use
  Company Number: 2013US002325

PATIENT
  Age: 30 Year
  Sex: Male

DRUGS (3)
  1. ICLUSIG [Suspect]
     Route: 048
     Dates: start: 201301, end: 201305
  2. TYLENOL (PARACETAMOL) [Concomitant]
  3. DECADRON (DEXAMETHASONE) [Concomitant]

REACTIONS (1)
  - Pancreatitis [None]
